FAERS Safety Report 12417073 (Version 1)
Quarter: 2016Q2

REPORT INFORMATION
  Report Type: Spontaneous
  Country: US (occurrence: US)
  Receive Date: 20160530
  Receipt Date: 20160530
  Transmission Date: 20160815
  Serious: No
  Sender: FDA-Public Use
  Company Number: US-PFIZER INC-2016258582

PATIENT
  Sex: Male

DRUGS (3)
  1. BACTRIM [Suspect]
     Active Substance: SULFAMETHOXAZOLE\TRIMETHOPRIM
  2. LORAZEPAM. [Suspect]
     Active Substance: LORAZEPAM
  3. METHADONE [Suspect]
     Active Substance: METHADONE HYDROCHLORIDE

REACTIONS (1)
  - Drug hypersensitivity [Unknown]
